FAERS Safety Report 6958283-X (Version None)
Quarter: 2010Q3

REPORT INFORMATION
  Report Type: 
  Country: None (occurrence: None)
  Receive Date: 20100831
  Receipt Date: 20100824
  Transmission Date: 20110219
  Serious: Yes (Other)
  Sender: FDA-Public Use
  Company Number: A0861725A

PATIENT
  Age: 53 Year
  Sex: Male
  Weight: 127.7 kg

DRUGS (18)
  1. AVANDIA [Suspect]
     Indication: DIABETES MELLITUS
     Dosage: 4MG TWICE PER DAY
     Route: 048
     Dates: start: 20050201, end: 20081101
  2. AVANDAMET [Suspect]
     Indication: DIABETES MELLITUS
     Route: 048
     Dates: start: 20040901, end: 20091001
  3. ASPIRIN [Concomitant]
  4. SPIRIVA [Concomitant]
  5. METFORMIN HCL [Concomitant]
  6. ADVAIR DISKUS 100/50 [Concomitant]
  7. DILTIAZEM HCL [Concomitant]
  8. STARLIX [Concomitant]
  9. LORTAB [Concomitant]
  10. LORAZEPAM [Concomitant]
  11. RANITIDINE [Concomitant]
  12. DIOVAN [Concomitant]
  13. HYDROCHLOROTHIAZIDE [Concomitant]
  14. LEVOTHYROXINE [Concomitant]
  15. VYTORIN [Concomitant]
  16. TRICOR [Concomitant]
  17. JANUVIA [Concomitant]
  18. XOPENEX [Concomitant]

REACTIONS (3)
  - CARDIAC DISORDER [None]
  - CARDIAC FAILURE [None]
  - PERICARDIAL EFFUSION [None]
